FAERS Safety Report 7992900 (Version 4)
Quarter: 2013Q4

REPORT INFORMATION
  Report Type: Spontaneous
  Country: US (occurrence: US)
  Receive Date: 20110615
  Receipt Date: 20131115
  Transmission Date: 20140711
  Serious: Yes (Hospitalization, Other)
  Sender: FDA-Public Use
  Company Number: US-BAYER-2011-050502

PATIENT
  Age: 48 Year
  Sex: Female
  Weight: 48.07 kg

DRUGS (5)
  1. YASMIN [Suspect]
     Indication: PREMENSTRUAL DYSPHORIC DISORDER
     Dosage: UNK
     Dates: start: 2008, end: 2010
  2. OCELLA [Suspect]
     Indication: PREMENSTRUAL DYSPHORIC DISORDER
     Dosage: UNK
     Dates: start: 2008, end: 2010
  3. YAZ [Suspect]
     Indication: PREMENSTRUAL DYSPHORIC DISORDER
     Dosage: UNK
     Dates: start: 2008, end: 2010
  4. VITAMIN C [Concomitant]
  5. PROZAC [Concomitant]

REACTIONS (4)
  - Gallbladder disorder [None]
  - Cholelithiasis [None]
  - Cholecystitis chronic [None]
  - Pain [None]
